FAERS Safety Report 7923901-6 (Version None)
Quarter: 2011Q4

REPORT INFORMATION
  Report Type: 
  Country: None (occurrence: None)
  Receive Date: 20111117
  Receipt Date: 20110210
  Transmission Date: 20120403
  Serious: No
  Sender: FDA-Public Use
  Company Number: US-AMGEN-USASP2011007989

PATIENT
  Sex: Male

DRUGS (2)
  1. ENBREL [Suspect]
     Indication: PSORIATIC ARTHROPATHY
     Dosage: 50 MG, QWK
     Dates: start: 20070101, end: 20100501
  2. ENBREL [Suspect]
     Indication: PSORIASIS

REACTIONS (4)
  - BACK PAIN [None]
  - GAIT DISTURBANCE [None]
  - JOINT STIFFNESS [None]
  - PSORIASIS [None]
